FAERS Safety Report 14648293 (Version 1)
Quarter: 2018Q1

REPORT INFORMATION
  Report Type: Spontaneous
  Country: FR (occurrence: FR)
  Receive Date: 20180316
  Receipt Date: 20180316
  Transmission Date: 20180509
  Serious: Yes (Other)
  Sender: FDA-Public Use
  Company Number: FR-PFIZER INC-2018106291

PATIENT
  Sex: Female

DRUGS (1)
  1. METHOTREXATE SODIUM. [Suspect]
     Active Substance: METHOTREXATE SODIUM
     Dosage: 2 DF, WEEKLY
     Route: 048
     Dates: start: 20171001

REACTIONS (4)
  - Drug dispensing error [Unknown]
  - Pain [Unknown]
  - Condition aggravated [Unknown]
  - Accidental underdose [Unknown]

NARRATIVE: CASE EVENT DATE: 20171001
